FAERS Safety Report 11105207 (Version 9)
Quarter: 2019Q4

REPORT INFORMATION
  Report Type: Spontaneous
  Country: US (occurrence: US)
  Receive Date: 20150511
  Receipt Date: 20191211
  Transmission Date: 20200122
  Serious: Yes (Other)
  Sender: FDA-Public Use
  Company Number: US-TEVA-561336ACC

PATIENT
  Age: 28 Year
  Sex: Female
  Weight: 63.56 kg

DRUGS (3)
  1. ZOFRAN [Concomitant]
     Active Substance: ONDANSETRON HYDROCHLORIDE
     Dosage: 12 MILLIGRAM DAILY;
     Dates: start: 20150106
  2. PLAN B ONE-STEP [Suspect]
     Active Substance: LEVONORGESTREL
     Dosage: 1.5 MILLIGRAM DAILY;
     Route: 048
     Dates: start: 20150419, end: 20150419
  3. PLAN B ONE-STEP [Suspect]
     Active Substance: LEVONORGESTREL
     Indication: POST COITAL CONTRACEPTION
     Dosage: 1.5 MILLIGRAM DAILY;
     Route: 048
     Dates: start: 20150413, end: 20150413

REACTIONS (5)
  - Pregnancy after post coital contraception [Unknown]
  - Hyperemesis gravidarum [Unknown]
  - Maternal exposure before pregnancy [Unknown]
  - Malaise [Unknown]
  - Live birth [Unknown]
